FAERS Safety Report 9577076 (Version 1)
Quarter: 2013Q4

REPORT INFORMATION
  Report Type: Spontaneous
  Country: US (occurrence: US)
  Receive Date: 20131001
  Receipt Date: 20131001
  Transmission Date: 20140711
  Serious: No
  Sender: FDA-Public Use
  Company Number: US-AMGEN-USASP2013006534

PATIENT
  Age: 68 Year
  Sex: Female
  Weight: 67.12 kg

DRUGS (14)
  1. ENBREL [Suspect]
     Indication: PSORIATIC ARTHROPATHY
     Dosage: 50 MG, ONCE A WEEK
     Route: 058
  2. ENBREL [Suspect]
     Indication: PSORIASIS
  3. CELEBREX [Concomitant]
     Dosage: UNK
  4. ZYRTEC [Concomitant]
     Dosage: 10 MG, UNK
  5. NASONEX [Concomitant]
     Dosage: 50 MCG/AC
  6. OMEPRAZOLE [Concomitant]
     Dosage: 40 MG, UNK
  7. VITAMIN C                          /00008001/ [Concomitant]
     Dosage: 500 MG, UNK
  8. RANITIDINE [Concomitant]
     Dosage: 75 MG, UNK
  9. TACLONEX [Concomitant]
     Dosage: UNK
  10. FISH OIL [Concomitant]
     Dosage: UNK
  11. B COMPLEX                          /00212701/ [Concomitant]
     Dosage: UNK
  12. FOLIC ACID [Concomitant]
     Dosage: 5 MG, UNK
  13. COQ [Concomitant]
     Dosage: 100 MG, UNK
  14. METHOTREXATE [Concomitant]
     Dosage: 2.5 MG, UNK

REACTIONS (1)
  - Bronchitis [Recovered/Resolved]
